FAERS Safety Report 9412380 (Version 1)
Quarter: 2013Q3

REPORT INFORMATION
  Report Type: Spontaneous
  Country: DE (occurrence: DE)
  Receive Date: 20130722
  Receipt Date: 20130722
  Transmission Date: 20140515
  Serious: Yes (Hospitalization)
  Sender: FDA-Public Use
  Company Number: DE-MYLANLABS-2013S1015650

PATIENT
  Age: 46 Year
  Sex: Female

DRUGS (3)
  1. CLOZAPINE [Suspect]
     Indication: SCHIZOPHRENIA, PARANOID TYPE
     Dosage: TITRATED TO 400MG DAILY BY 3W; THEN DECREASED TO 200MG DAILY
     Route: 065
     Dates: start: 201207
  2. CLOZAPINE [Suspect]
     Indication: SCHIZOPHRENIA, PARANOID TYPE
     Dosage: 200MG DAILY
     Route: 065
     Dates: start: 201207
  3. COTRIMOXAZOLE [Concomitant]
     Indication: INFECTION
     Route: 065
     Dates: start: 2012

REACTIONS (4)
  - Toxicity to various agents [Unknown]
  - Somnolence [Unknown]
  - Sopor [Unknown]
  - Electrocardiogram QT prolonged [Unknown]
